FAERS Safety Report 7108153-1 (Version None)
Quarter: 2010Q4

REPORT INFORMATION
  Report Type: 
  Country: None (occurrence: None)
  Receive Date: 20101115
  Receipt Date: 20101115
  Transmission Date: 20110411
  Serious: Yes (Hospitalization, Disabling)
  Sender: FDA-Public Use
  Company Number: None

PATIENT
  Age: 51 Year
  Sex: Female
  Weight: 65.7716 kg

DRUGS (3)
  1. ENBREL [Suspect]
     Indication: PSORIASIS
     Dosage: 50 MG 2X WEEK SC
     Route: 058
     Dates: start: 20080401, end: 20100601
  2. LIPITOR [Concomitant]
  3. BENICAR [Concomitant]

REACTIONS (2)
  - DEMYELINATION [None]
  - NO THERAPEUTIC RESPONSE [None]
